FAERS Safety Report 14660302 (Version 2)
Quarter: 2018Q4

REPORT INFORMATION
  Report Type: Spontaneous
  Country: DE (occurrence: DE)
  Receive Date: 20180320
  Receipt Date: 20181005
  Transmission Date: 20190204
  Serious: Yes (Hospitalization, Other)
  Sender: FDA-Public Use
  Company Number: DE-PFIZER INC-2018109073

PATIENT
  Age: 61 Year
  Sex: Female

DRUGS (7)
  1. JATROSOM /00071702/ [Suspect]
     Active Substance: TRANYLCYPROMINE SULFATE
     Dosage: 60 MG, 1X/DAY
     Route: 048
     Dates: end: 20150106
  2. JATROSOM /00071702/ [Suspect]
     Active Substance: TRANYLCYPROMINE SULFATE
     Dosage: 30 MG, 1X/DAY
     Route: 048
     Dates: start: 20150109, end: 20150110
  3. JATROSOM /00071702/ [Suspect]
     Active Substance: TRANYLCYPROMINE SULFATE
     Dosage: 40 MG, 1X/DAY
     Route: 048
     Dates: start: 20150107, end: 20150108
  4. VENLAFAXINE HCL [Suspect]
     Active Substance: VENLAFAXINE HYDROCHLORIDE
     Dosage: 75 MG, 1X/DAY
     Route: 048
     Dates: start: 20150126, end: 20150127
  5. JATROSOM /00071702/ [Suspect]
     Active Substance: TRANYLCYPROMINE SULFATE
     Dosage: 20 MG, 1X/DAY
     Route: 048
     Dates: start: 20150111, end: 20150112
  6. ABILIFY [Suspect]
     Active Substance: ARIPIPRAZOLE
     Dosage: 10 MG, 1X/DAY
     Route: 048
     Dates: start: 20130101
  7. TREVILOR RETARD [Suspect]
     Active Substance: VENLAFAXINE HYDROCHLORIDE
     Dosage: 75 MG, 1X/DAY
     Route: 048
     Dates: start: 20150126, end: 20150127

REACTIONS (4)
  - Nervousness [Recovered/Resolved]
  - Restlessness [Recovered/Resolved]
  - Serotonin syndrome [Recovered/Resolved]
  - Disturbance in attention [Recovered/Resolved]

NARRATIVE: CASE EVENT DATE: 20150126
